FAERS Safety Report 10167215 (Version 1)
Quarter: 2014Q2

REPORT INFORMATION
  Report Type: Spontaneous
  Country: US (occurrence: US)
  Receive Date: 20140512
  Receipt Date: 20140512
  Transmission Date: 20141212
  Serious: No
  Sender: FDA-Public Use
  Company Number: US-PFIZER INC-2014129522

PATIENT
  Age: 76 Year
  Sex: Female
  Weight: 68.03 kg

DRUGS (2)
  1. LYRICA [Suspect]
     Indication: SCIATIC NERVE NEUROPATHY
     Dosage: 75 MG, 3X/DAY
  2. LYRICA [Suspect]
     Indication: HYPOAESTHESIA

REACTIONS (2)
  - Lip pruritus [Not Recovered/Not Resolved]
  - Pruritus [Not Recovered/Not Resolved]
